FAERS Safety Report 16222684 (Version 1)
Quarter: 2019Q2

REPORT INFORMATION
  Report Type: Spontaneous
  Country: US (occurrence: US)
  Receive Date: 20190419
  Receipt Date: 20190419
  Transmission Date: 20190711
  Serious: No
  Sender: FDA-Public Use
  Company Number: None

PATIENT
  Age: 46 Year
  Sex: Female
  Weight: 57.6 kg

DRUGS (1)
  1. CLONAZEPAM. [Suspect]
     Active Substance: CLONAZEPAM
     Indication: INJURY
     Dosage: ?          QUANTITY:1 TABLET(S);?
     Route: 048
     Dates: start: 20060527, end: 20190419

REACTIONS (5)
  - Cognitive disorder [None]
  - Impaired work ability [None]
  - Adverse event [None]
  - Insurance issue [None]
  - Asthenia [None]

NARRATIVE: CASE EVENT DATE: 20181101
